FAERS Safety Report 15610166 (Version 1)
Quarter: 2018Q4

REPORT INFORMATION
  Report Type: Spontaneous
  Country: FR (occurrence: FR)
  Receive Date: 20181113
  Receipt Date: 20181113
  Transmission Date: 20190205
  Serious: Yes (Death)
  Sender: FDA-Public Use
  Company Number: FR-ACCORD-091834

PATIENT
  Age: 67 Year
  Sex: Male

DRUGS (14)
  1. CYTARABINE/CYTARABINE HYDROCHLORIDE/CYTARABINE OCFOSFATE [Suspect]
     Active Substance: CYTARABINE
     Indication: B-CELL LYMPHOMA
     Route: 042
     Dates: start: 20180528, end: 20180528
  2. LEVETIRACETAM. [Suspect]
     Active Substance: LEVETIRACETAM
     Indication: SEIZURE
     Route: 042
     Dates: start: 20180524
  3. RITUXIMAB. [Suspect]
     Active Substance: RITUXIMAB
     Indication: B-CELL LYMPHOMA
     Route: 042
     Dates: start: 20180518, end: 20180518
  4. CYCLOPHOSPHAMIDE/CYCLOPHOSPHAMIDE MONOHYDRATE [Suspect]
     Active Substance: CYCLOPHOSPHAMIDE
     Indication: B-CELL LYMPHOMA
     Route: 042
     Dates: start: 20180518, end: 20180518
  5. PANTOPRAZOLE [Concomitant]
     Active Substance: PANTOPRAZOLE
  6. LEVOFLOXACINE ACTAVIS [Suspect]
     Active Substance: LEVOFLOXACIN
     Indication: INFECTION
     Route: 042
     Dates: start: 20180531, end: 20180613
  7. HUMALOG [Concomitant]
     Active Substance: INSULIN LISPRO
  8. METHOTREXATE. [Suspect]
     Active Substance: METHOTREXATE
     Indication: B-CELL LYMPHOMA
     Route: 042
     Dates: start: 20180528, end: 20180528
  9. DOXORUBICIN [Suspect]
     Active Substance: DOXORUBICIN
     Indication: B-CELL LYMPHOMA
     Route: 042
     Dates: start: 20180518, end: 20180518
  10. VINCRISTINE [Suspect]
     Active Substance: VINCRISTINE
     Indication: B-CELL LYMPHOMA
     Route: 042
     Dates: start: 20180518, end: 20180518
  11. TINZAPARIN [Concomitant]
     Active Substance: TINZAPARIN
  12. CEFAZOLINE MYLAN [Suspect]
     Active Substance: CEFAZOLIN SODIUM
     Indication: INFECTION
     Route: 042
     Dates: start: 20180531, end: 20180613
  13. VANCOMYCIN SANDOZ [Suspect]
     Active Substance: VANCOMYCIN
     Indication: INFECTION
     Route: 042
     Dates: start: 20180528, end: 20180611
  14. ISOPHANE INSULIN [Suspect]
     Active Substance: INSULIN NOS
     Indication: DIABETES MELLITUS
     Route: 058
     Dates: start: 20180524

REACTIONS (1)
  - Jaundice cholestatic [Fatal]

NARRATIVE: CASE EVENT DATE: 20180606
